FAERS Safety Report 26143090 (Version 2)
Quarter: 2025Q4

REPORT INFORMATION
  Report Type: Spontaneous
  Country: US (occurrence: US)
  Receive Date: 20251211
  Receipt Date: 20251217
  Transmission Date: 20260117
  Serious: No
  Sender: Kenvue
  Company Number: US-KENVUE-20251109324

PATIENT
  Sex: Female

DRUGS (1)
  1. WOMENS ROGAINE UNSCENTED [Suspect]
     Active Substance: MINOXIDIL
     Indication: Alopecia
     Dosage: ABOUT HALF A CAPFUL OR HALF A CAPFUL SOMETIMES MORE THAN HALF A CAPFUL, ONCE A DAY
     Route: 065
     Dates: start: 202510

REACTIONS (2)
  - Overdose [Unknown]
  - Product closure issue [Unknown]

NARRATIVE: CASE EVENT DATE: 20250101
